FAERS Safety Report 5688090-X (Version None)
Quarter: 2008Q1

REPORT INFORMATION
  Report Type: 
  Country: None (occurrence: None)
  Receive Date: 20080327
  Receipt Date: 20080314
  Transmission Date: 20080703
  Serious: Yes (Hospitalization)
  Sender: FDA-Public Use
  Company Number: 2008-00902

PATIENT
  Age: 60 Year
  Sex: Male
  Weight: 69.9 kg

DRUGS (16)
  1. VELCADE [Suspect]
     Indication: MANTLE CELL LYMPHOMA
  2. RITUXAN [Suspect]
     Indication: MANTLE CELL LYMPHOMA
  3. CYCLOPHOSPHAMIDE [Suspect]
     Indication: MANTLE CELL LYMPHOMA
  4. DOXORUBICIN HCL [Suspect]
     Indication: MANTLE CELL LYMPHOMA
  5. VINCRISTINE [Suspect]
     Indication: MANTLE CELL LYMPHOMA
  6. DEXAMETHASONE TAB [Suspect]
     Indication: MANTLE CELL LYMPHOMA
  7. JANUMET [Concomitant]
  8. MAGNESIUM (MAGNESIUM) [Concomitant]
  9. ZOFRAN [Concomitant]
  10. PREVACID [Concomitant]
  11. PROPOXYPHENE (DEXTROPROPOXYPHENE) [Concomitant]
  12. VALACYCLOVIR [Concomitant]
  13. SEROQUEL [Concomitant]
  14. CIPROFLOXACIN [Concomitant]
  15. NEUPOGEN [Concomitant]
  16. FLUCONAZOLE [Concomitant]

REACTIONS (6)
  - BACTERIAL INFECTION [None]
  - HAEMOGLOBIN DECREASED [None]
  - INFLUENZA [None]
  - NEUTROPENIA [None]
  - RESPIRATORY DISTRESS [None]
  - SPUTUM CULTURE POSITIVE [None]
